FAERS Safety Report 11562291 (Version 1)
Quarter: 2015Q3

REPORT INFORMATION
  Report Type: Spontaneous
  Country: IN (occurrence: IN)
  Receive Date: 20150928
  Receipt Date: 20150928
  Transmission Date: 20151125
  Serious: Yes (Hospitalization)
  Sender: FDA-Public Use
  Company Number: IN-IPCA LABORATORIES LIMITED-IPC201509-000618

PATIENT
  Age: 72 Year
  Sex: Male
  Weight: 68 kg

DRUGS (10)
  1. PROPOFOL. [Suspect]
     Active Substance: PROPOFOL
     Indication: INDUCTION OF ANAESTHESIA
     Route: 042
  2. AMLODIPINE BESILATE [Suspect]
     Active Substance: AMLODIPINE BESYLATE
     Indication: HYPERTENSION
  3. ONDANSETRON [Concomitant]
     Active Substance: ONDANSETRON
     Indication: ANAESTHETIC PREMEDICATION
  4. MORPHINE [Concomitant]
     Active Substance: MORPHINE
     Indication: MAINTENANCE OF ANAESTHESIA
  5. METOPROLOL TARTRATE. [Suspect]
     Active Substance: METOPROLOL TARTRATE
     Indication: HYPERTENSION
  6. ISOFLURANE. [Suspect]
     Active Substance: ISOFLURANE
     Indication: MAINTENANCE OF ANAESTHESIA
  7. GLYCOPYRROLATE. [Concomitant]
     Active Substance: GLYCOPYRROLATE
     Indication: ANAESTHETIC PREMEDICATION
  8. FENTANYL. [Concomitant]
     Active Substance: FENTANYL
     Indication: ANAESTHETIC PREMEDICATION
  9. VECURONIUM [Concomitant]
     Active Substance: VECURONIUM BROMIDE
     Indication: MAINTENANCE OF ANAESTHESIA
     Route: 042
  10. NITROUS-OXIDE [Suspect]
     Active Substance: NITROUS OXIDE
     Indication: MAINTENANCE OF ANAESTHESIA

REACTIONS (8)
  - Drug interaction [Unknown]
  - Hypoperfusion [Recovered/Resolved]
  - Bradycardia [Recovered/Resolved]
  - Metabolic acidosis [Unknown]
  - Toxicity to various agents [Unknown]
  - Lactic acidosis [Unknown]
  - Vein collapse [Unknown]
  - Hypotension [Recovering/Resolving]
